FAERS Safety Report 7015359-9 (Version None)
Quarter: 2010Q3

REPORT INFORMATION
  Report Type: 
  Country: None (occurrence: None)
  Receive Date: 20100922
  Receipt Date: 20100913
  Transmission Date: 20110219
  Serious: Yes (Hospitalization)
  Sender: FDA-Public Use
  Company Number: 2010US003402

PATIENT
  Age: 41 Year
  Sex: Female

DRUGS (13)
  1. LEXISCAN [Suspect]
     Indication: SCAN MYOCARDIAL PERFUSION
     Dosage: IV NOS
     Route: 042
     Dates: start: 20100818, end: 20100818
  2. LANTUS [Concomitant]
  3. NOVOLOG [Concomitant]
  4. PRAVASTATIN [Concomitant]
  5. PLAVIX [Concomitant]
  6. PHENERGAN (SODIUM CITRATE, SULFOGAIACOL) [Concomitant]
  7. GABAPENTIN [Concomitant]
  8. PERCOCET [Concomitant]
  9. ASPIRIN [Concomitant]
  10. NITRO (NAPHAZOLINE NITRATE, PHENYLEPHRINE HYDROCHLORIDE) [Concomitant]
  11. TRAMADOL HCL [Concomitant]
  12. BENADRYL [Concomitant]
  13. LISINOPRIL [Concomitant]

REACTIONS (2)
  - CARDIOVASCULAR DISORDER [None]
  - CHEST PAIN [None]
